FAERS Safety Report 8285284-4 (Version None)
Quarter: 2012Q2

REPORT INFORMATION
  Report Type: 
  Country: None (occurrence: None)
  Receive Date: 20120413
  Receipt Date: 20120329
  Transmission Date: 20120825
  Serious: Yes (Other)
  Sender: FDA-Public Use
  Company Number: CHPA2012US006712

PATIENT
  Sex: Female

DRUGS (4)
  1. EXCEDRIN EXTRA STRENGTH TABLETS [Suspect]
     Indication: HEADACHE
     Dosage: UNK, UNK
     Route: 048
  2. GAS-X PREVENTION [Concomitant]
  3. EXCEDRIN (MIGRAINE) [Suspect]
     Indication: HEADACHE
     Dosage: UNK, UNK
     Route: 048
  4. EXCEDRIN TENSION HEADACHE CAPLETS [Suspect]
     Indication: HEADACHE
     Dosage: UNK, UNK

REACTIONS (5)
  - GASTROOESOPHAGEAL REFLUX DISEASE [None]
  - MUSCLE SPASMS [None]
  - REBOUND EFFECT [None]
  - DRUG DEPENDENCE [None]
  - DRY EYE [None]
